FAERS Safety Report 6329300-5 (Version None)
Quarter: 2009Q3

REPORT INFORMATION
  Report Type: 
  Country: None (occurrence: None)
  Receive Date: 20090825
  Receipt Date: 20090825
  Transmission Date: 20100115
  Serious: Yes (Other)
  Sender: FDA-Public Use
  Company Number: None

PATIENT
  Sex: Female
  Weight: 107.9561 kg

DRUGS (3)
  1. MIRENA [Suspect]
     Indication: CONTRACEPTION
     Dosage: INTRAUTERINE
     Route: 015
     Dates: start: 20090225, end: 20090821
  2. LAMOTRIGINE [Concomitant]
  3. CITALOPRAM [Concomitant]

REACTIONS (7)
  - ABDOMINAL PAIN [None]
  - ACNE [None]
  - DEPRESSED MOOD [None]
  - HEADACHE [None]
  - HYPERTRICHOSIS [None]
  - SEBORRHOEA [None]
  - VAGINAL INFECTION [None]
